FAERS Safety Report 8475929-8 (Version None)
Quarter: 2012Q2

REPORT INFORMATION
  Report Type: 
  Country: None (occurrence: None)
  Receive Date: 20120628
  Receipt Date: 20120618
  Transmission Date: 20120825
  Serious: Yes (Hospitalization)
  Sender: FDA-Public Use
  Company Number: JP-WATSON-2012-11166

PATIENT
  Age: 50 Year
  Sex: Female

DRUGS (6)
  1. IMIPENEM [Suspect]
     Indication: OSTEOMYELITIS
  2. LEVOFLOXACIN [Suspect]
     Indication: C-REACTIVE PROTEIN INCREASED
     Dosage: 100 MG, TID
     Route: 048
  3. CEFOZOPRAN [Suspect]
     Indication: ENDOCARDITIS
     Dosage: 1 G, BID
     Route: 065
  4. CEFOZOPRAN [Suspect]
     Indication: OSTEOMYELITIS
  5. CLARITHROMYCIN [Suspect]
     Indication: C-REACTIVE PROTEIN INCREASED
     Dosage: 200 MG, BID
     Route: 048
  6. IMIPENEM [Suspect]
     Indication: ENDOCARDITIS
     Dosage: 0.5 MG, BID
     Route: 065

REACTIONS (1)
  - RENAL ANEURYSM [None]
